FAERS Safety Report 8739271 (Version 2)
Quarter: 2012Q4

REPORT INFORMATION
  Report Type: 
  Country: JP (occurrence: JP)
  Receive Date: 20120823
  Receipt Date: 20121008
  Transmission Date: 20130627
  Serious: Yes (Hospitalization)
  Sender: FDA-Public Use
  Company Number: JP-JNJFOC-20120811270

PATIENT
  Age: 63 Year
  Sex: Male
  Weight: 66 kg

DRUGS (6)
  1. XARELTO [Suspect]
     Indication: EMBOLISM VENOUS
     Route: 048
     Dates: start: 20120814, end: 20120814
  2. XARELTO [Suspect]
     Indication: EMBOLISM VENOUS
     Route: 048
     Dates: start: 20120810, end: 20120811
  3. XARELTO [Suspect]
     Indication: THROMBOSIS PROPHYLAXIS
     Route: 048
     Dates: start: 20120810, end: 20120811
  4. XARELTO [Suspect]
     Indication: THROMBOSIS PROPHYLAXIS
     Route: 048
     Dates: start: 20120814, end: 20120814
  5. BAYASPIRIN [Concomitant]
     Dosage: gastro-resistant tablet
     Route: 048
  6. PLAVIX [Concomitant]
     Dates: start: 20120809, end: 20120810

REACTIONS (2)
  - Cerebral infarction [Recovering/Resolving]
  - Cerebral infarction [Recovering/Resolving]
